FAERS Safety Report 13685611 (Version 1)
Quarter: 2017Q2

REPORT INFORMATION
  Report Type: Spontaneous
  Country: US (occurrence: US)
  Receive Date: 20170623
  Receipt Date: 20170623
  Transmission Date: 20170830
  Serious: No
  Sender: FDA-Public Use
  Company Number: US-TARO-2016TAR00545

PATIENT
  Sex: Female
  Weight: 90.7 kg

DRUGS (8)
  1. VITAMIN D [Concomitant]
     Active Substance: CHOLECALCIFEROL
  2. VITAMIN B [Concomitant]
     Active Substance: VITAMIN B
  3. BETAINE HCL [Concomitant]
  4. GINGER ROOT [Concomitant]
     Active Substance: GINGER
  5. CETIRIZINE HCL [Suspect]
     Active Substance: CETIRIZINE HYDROCHLORIDE
     Indication: MULTIPLE ALLERGIES
  6. CETIRIZINE HCL [Suspect]
     Active Substance: CETIRIZINE HYDROCHLORIDE
     Indication: MAST CELL ACTIVATION SYNDROME
     Dosage: 2 TSP, 1X/DAY
     Route: 048
     Dates: start: 2011
  7. CALCIUM [Concomitant]
     Active Substance: CALCIUM
  8. MAGNESIUM [Concomitant]
     Active Substance: MAGNESIUM

REACTIONS (4)
  - Feeling abnormal [Recovered/Resolved]
  - Fatigue [Recovered/Resolved]
  - Coeliac disease [Not Recovered/Not Resolved]
  - Gastrointestinal disorder [Recovered/Resolved]

NARRATIVE: CASE EVENT DATE: 2015
